FAERS Safety Report 19237387 (Version 1)
Quarter: 2021Q2

REPORT INFORMATION
  Report Type: Spontaneous
  Country: US (occurrence: US)
  Receive Date: 20210510
  Receipt Date: 20210510
  Transmission Date: 20210717
  Serious: Yes (Other)
  Sender: FDA-Public Use
  Company Number: None

PATIENT
  Age: 56 Year
  Sex: Female
  Weight: 86.4 kg

DRUGS (10)
  1. AVORVASTATIN [Concomitant]
  2. OMEPRAZOLE 40MG [Suspect]
     Active Substance: OMEPRAZOLE
     Indication: GASTROOESOPHAGEAL REFLUX DISEASE
     Dosage: ?          QUANTITY:1 CAPSULE(S);?
     Route: 048
  3. OMEPRAZONE (NON?AZ PRODUCT) [Concomitant]
     Active Substance: OMEPRAZOLE
  4. EPINEPHRINE. [Concomitant]
     Active Substance: EPINEPHRINE
  5. AMLODIPNE [Concomitant]
  6. ALENDRONATE [Concomitant]
     Active Substance: ALENDRONATE SODIUM
  7. VITAMIN D3 [Concomitant]
     Active Substance: CHOLECALCIFEROL
  8. SPIRONOLACTONE. [Concomitant]
     Active Substance: SPIRONOLACTONE
  9. NITROGLYCERIN. [Concomitant]
     Active Substance: NITROGLYCERIN
  10. SENTRY SENIOR MULTIVITAMIN + MULTIMINERAL SUPPLEMENT [Concomitant]

REACTIONS (7)
  - Hypophagia [None]
  - Abdominal pain lower [None]
  - Abdominal distension [None]
  - Urinary incontinence [None]
  - Pyrexia [None]
  - Drug ineffective [None]
  - Flatulence [None]

NARRATIVE: CASE EVENT DATE: 20210510
